FAERS Safety Report 15091920 (Version 1)
Quarter: 2018Q2

REPORT INFORMATION
  Report Type: Spontaneous
  Country: US (occurrence: US)
  Receive Date: 20180629
  Receipt Date: 20180629
  Transmission Date: 20180711
  Serious: No
  Sender: FDA-Public Use
  Company Number: US-AMGEN-USASP2015090866

PATIENT
  Age: 83 Year
  Sex: Male

DRUGS (2)
  1. LUPRON [Concomitant]
     Active Substance: LEUPROLIDE ACETATE
     Indication: PROSTATIC SPECIFIC ANTIGEN ABNORMAL
     Dosage: UNK
  2. PROLIA [Suspect]
     Active Substance: DENOSUMAB
     Indication: BONE LOSS
     Dosage: UNK
     Route: 065

REACTIONS (6)
  - Fall [Unknown]
  - Paraesthesia [Unknown]
  - Muscular weakness [Unknown]
  - Feeling abnormal [Unknown]
  - Pruritus [Unknown]
  - Walking aid user [Unknown]

NARRATIVE: CASE EVENT DATE: 20150729
